FAERS Safety Report 20180662 (Version 1)
Quarter: 2021Q4

REPORT INFORMATION
  Report Type: Spontaneous
  Country: US (occurrence: US)
  Receive Date: 20211214
  Receipt Date: 20211214
  Transmission Date: 20220303
  Serious: No
  Sender: FDA-Public Use
  Company Number: US-Global Blood Therapeutics Inc-US-GBT-21-04122

PATIENT
  Sex: Female
  Weight: 51 kg

DRUGS (4)
  1. OXBRYTA [Suspect]
     Active Substance: VOXELOTOR
     Indication: Sickle cell disease
     Dosage: NOT PROVIDED
  2. FERRIPROX [Concomitant]
     Active Substance: DEFERIPRONE
     Indication: Haemochromatosis
     Dosage: NOT PROVIDED
  3. FERRIPROX [Concomitant]
     Active Substance: DEFERIPRONE
     Indication: Transfusion
  4. JADENU [Concomitant]
     Active Substance: DEFERASIROX
     Indication: Product used for unknown indication
     Dosage: NOT PROVIDED

REACTIONS (2)
  - Fatigue [Unknown]
  - Urticaria [Unknown]
